FAERS Safety Report 4312504-0 (Version None)
Quarter: 2004Q1

REPORT INFORMATION
  Report Type: 
  Country: None (occurrence: None)
  Receive Date: 20040303
  Receipt Date: 20040223
  Transmission Date: 20041129
  Serious: Yes (Death)
  Sender: FDA-Public Use
  Company Number: 2004EU000400

PATIENT
  Age: 55 Year
  Sex: Female

DRUGS (3)
  1. FK506 (TACROLIMUS) FORMULATION UNKNOWN [Suspect]
     Indication: RENAL TRANSPLANT
     Dosage: UNK, UNKNOWN/D, UNK
  2. AZATHIOPRINE [Concomitant]
  3. PREDNISOLONE [Concomitant]

REACTIONS (6)
  - ABDOMINAL PAIN [None]
  - CERVIX CARCINOMA STAGE II [None]
  - CONFUSIONAL STATE [None]
  - GENERAL PHYSICAL HEALTH DETERIORATION [None]
  - MALIGNANT MELANOMA STAGE IV [None]
  - VOMITING [None]
